FAERS Safety Report 7290681-X (Version None)
Quarter: 2011Q1

REPORT INFORMATION
  Report Type: 
  Country: None (occurrence: None)
  Receive Date: 20110214
  Receipt Date: 20110202
  Transmission Date: 20110831
  Serious: Yes (Other)
  Sender: FDA-Public Use
  Company Number: FI-SANOFI-AVENTIS-2011SA007373

PATIENT
  Age: 65 Year
  Sex: Female

DRUGS (4)
  1. WARFARIN SODIUM [Concomitant]
     Route: 048
  2. MULTAQ [Suspect]
     Indication: ATRIAL FIBRILLATION
     Route: 048
     Dates: start: 20101024, end: 20101201
  3. ATACAND [Concomitant]
     Route: 048
  4. EMCONCOR CHF [Concomitant]
     Route: 048

REACTIONS (4)
  - HEPATOCELLULAR INJURY [None]
  - ASPARTATE AMINOTRANSFERASE INCREASED [None]
  - GAMMA-GLUTAMYLTRANSFERASE INCREASED [None]
  - ALANINE AMINOTRANSFERASE INCREASED [None]
